FAERS Safety Report 11088516 (Version 1)
Quarter: 2015Q2

REPORT INFORMATION
  Report Type: Spontaneous
  Country: US (occurrence: US)
  Receive Date: 20150504
  Receipt Date: 20150504
  Transmission Date: 20150821
  Serious: No
  Sender: FDA-Public Use
  Company Number: US-TARO-2014TAR00174

PATIENT
  Age: 49 Year
  Sex: Female
  Weight: 61.22 kg

DRUGS (5)
  1. ETODOLAC TABLETS 400 MG [Suspect]
     Active Substance: ETODOLAC
     Indication: EYE INFLAMMATION
     Dosage: 400 MG, 1X/DAY
     Route: 048
     Dates: start: 2012
  2. CALCIUM [Concomitant]
     Active Substance: CALCIUM
  3. TIROSINT [Concomitant]
     Active Substance: LEVOTHYROXINE SODIUM
  4. VITAMIN D [Concomitant]
     Active Substance: CHOLECALCIFEROL
  5. UNSPECIFIED EYE DROPS [Concomitant]
     Active Substance: UNSPECIFIED INGREDIENT

REACTIONS (2)
  - Urticaria [Not Recovered/Not Resolved]
  - Pruritus [Not Recovered/Not Resolved]

NARRATIVE: CASE EVENT DATE: 2012
